FAERS Safety Report 17372462 (Version 2)
Quarter: 2020Q2

REPORT INFORMATION
  Report Type: Spontaneous
  Country: US (occurrence: US)
  Receive Date: 20200205
  Receipt Date: 20200528
  Transmission Date: 20200713
  Serious: Yes (Hospitalization)
  Sender: FDA-Public Use
  Company Number: US-ASTRAZENECA-2020SE16684

PATIENT
  Age: 281 Day
  Sex: Female
  Weight: 9.8 kg

DRUGS (3)
  1. ALBUTEROL. [Concomitant]
     Active Substance: ALBUTEROL
  2. SYNAGIS [Suspect]
     Active Substance: PALIVIZUMAB
     Indication: FAILURE TO THRIVE
     Route: 030
     Dates: start: 20191126
  3. SYNAGIS [Suspect]
     Active Substance: PALIVIZUMAB
     Indication: CYSTIC FIBROSIS
     Route: 030
     Dates: start: 20191126

REACTIONS (1)
  - Rhinovirus infection [Recovered/Resolved]

NARRATIVE: CASE EVENT DATE: 20191226
